FAERS Safety Report 10409515 (Version 1)
Quarter: 2014Q3

REPORT INFORMATION
  Report Type: Spontaneous
  Country: FR (occurrence: None)
  Receive Date: 20140825
  Receipt Date: 20140825
  Transmission Date: 20150326
  Serious: Yes (Hospitalization)
  Sender: FDA-Public Use
  Company Number: 2014-002478

PATIENT
  Age: 81 Year
  Sex: Female

DRUGS (7)
  1. COUMADIN [Suspect]
     Active Substance: WARFARIN SODIUM
     Route: 048
  2. LASILIX [Suspect]
     Active Substance: FUROSEMIDE
     Route: 048
  3. ATACAND [Suspect]
     Active Substance: CANDESARTAN CILEXETIL
     Route: 048
  4. ACTONEL [Suspect]
     Active Substance: RISEDRONATE SODIUM
     Dosage: 35 MG, 1/WEEK, ORAL
     Route: 048
  5. FEMARA [Suspect]
     Active Substance: LETROZOLE
     Indication: BREAST CANCER
     Route: 048
     Dates: start: 201306, end: 201403
  6. EUPANTOL [Suspect]
     Active Substance: PANTOPRAZOLE SODIUM
     Route: 048
  7. IMOVANE [Suspect]
     Active Substance: ZOPICLONE
     Dosage: DOSAGE / FREQUENCY UNKNOWN, ORAL
     Route: 048

REACTIONS (3)
  - Arthralgia [None]
  - Complement factor C4 decreased [None]
  - Systemic lupus erythematosus [None]

NARRATIVE: CASE EVENT DATE: 201403
